FAERS Safety Report 4403747-6 (Version None)
Quarter: 2004Q3

REPORT INFORMATION
  Report Type: 
  Country: None (occurrence: None)
  Receive Date: 20040719
  Receipt Date: 20040708
  Transmission Date: 20050211
  Serious: Yes (Other)
  Sender: FDA-Public Use
  Company Number: 206077

PATIENT
  Age: 37 Year
  Sex: Female
  Weight: 64.9 kg

DRUGS (3)
  1. HERCEPTIN [Suspect]
     Indication: BREAST CANCER
     Dosage: 132 MG, 1/WEEK, INTRAVENOUS
     Route: 042
     Dates: start: 19981029
  2. AREDIA [Concomitant]
  3. TAXOL [Concomitant]

REACTIONS (2)
  - BREAST CANCER [None]
  - RETINOPATHY [None]
